FAERS Safety Report 6614868-1 (Version None)
Quarter: 2010Q1

REPORT INFORMATION
  Report Type: 
  Country: None (occurrence: None)
  Receive Date: 20100305
  Receipt Date: 20100226
  Transmission Date: 20100710
  Serious: Yes (Other)
  Sender: FDA-Public Use
  Company Number: 2007BI004275

PATIENT
  Sex: Male

DRUGS (9)
  1. TYSABRI [Suspect]
     Indication: MULTIPLE SCLEROSIS
     Route: 042
     Dates: start: 20061024
  2. ADDERALL 30 [Concomitant]
  3. BACLOFEN [Concomitant]
  4. KLONOPIN [Concomitant]
  5. FLOMAX [Concomitant]
  6. ANTIVERT [Concomitant]
  7. LEXAPRO [Concomitant]
  8. ARICEPT [Concomitant]
  9. FLONASE [Concomitant]

REACTIONS (4)
  - CEREBRAL ATROPHY [None]
  - MEMORY IMPAIRMENT [None]
  - MULTIPLE SCLEROSIS RELAPSE [None]
  - SQUAMOUS CELL CARCINOMA [None]
